FAERS Safety Report 8309605-9 (Version None)
Quarter: 2012Q2

REPORT INFORMATION
  Report Type: 
  Country: None (occurrence: None)
  Receive Date: 20120425
  Receipt Date: 20120417
  Transmission Date: 20120825
  Serious: Yes (Other)
  Sender: FDA-Public Use
  Company Number: AU-BAYER-2012-037129

PATIENT
  Age: 37 Year
  Sex: Female
  Weight: 88 kg

DRUGS (2)
  1. MIRENA [Suspect]
     Indication: CONTRACEPTION
     Dosage: UNK
     Route: 015
     Dates: start: 20070105
  2. MIRENA [Suspect]
     Indication: MENORRHAGIA
     Dosage: UNK
     Route: 015
     Dates: start: 20120416

REACTIONS (3)
  - COITAL BLEEDING [None]
  - DEVICE DISLOCATION [None]
  - CERVICAL POLYP [None]
